FAERS Safety Report 20210082 (Version 1)
Quarter: 2021Q4

REPORT INFORMATION
  Report Type: Other
  Country: KR (occurrence: None)
  Receive Date: 20211221
  Receipt Date: 20211221
  Transmission Date: 20220303
  Serious: Yes (Other)
  Sender: FDA-Public Use
  Company Number: KR-ROCHE-2983173

PATIENT

DRUGS (7)
  1. ERLOTINIB [Suspect]
     Active Substance: ERLOTINIB
     Indication: Neoplasm malignant
     Route: 048
  2. RITUXIMAB [Suspect]
     Active Substance: RITUXIMAB
     Indication: Neoplasm malignant
     Route: 065
  3. BEVACIZUMAB [Suspect]
     Active Substance: BEVACIZUMAB
     Indication: Neoplasm malignant
     Route: 065
  4. CETUXIMAB [Suspect]
     Active Substance: CETUXIMAB
     Indication: Neoplasm malignant
     Route: 065
  5. TRASTUZUMAB [Suspect]
     Active Substance: TRASTUZUMAB
     Indication: Neoplasm malignant
     Route: 065
  6. GEFITINIB [Suspect]
     Active Substance: GEFITINIB
     Indication: Neoplasm malignant
     Route: 065
  7. IMATINIB [Suspect]
     Active Substance: IMATINIB
     Indication: Neoplasm malignant
     Route: 065

REACTIONS (11)
  - Pneumonitis [Unknown]
  - Organising pneumonia [Unknown]
  - Eosinophilic pneumonia [Unknown]
  - Pulmonary fibrosis [Unknown]
  - Bronchiolitis [Unknown]
  - Pulmonary oedema [Unknown]
  - Acute respiratory distress syndrome [Unknown]
  - Pulmonary alveolar haemorrhage [Unknown]
  - Pulmonary embolism [Unknown]
  - Interstitial lung disease [Unknown]
  - Pleural effusion [Unknown]
